FAERS Safety Report 14350189 (Version 3)
Quarter: 2018Q1

REPORT INFORMATION
  Report Type: Report from Study
  Country: US (occurrence: US)
  Receive Date: 20180104
  Receipt Date: 20180306
  Transmission Date: 20180509
  Serious: Yes (Other)
  Sender: FDA-Public Use
  Company Number: US-PFIZER INC-2017410192

PATIENT
  Age: 70 Year
  Sex: Female

DRUGS (6)
  1. IBRANCE [Suspect]
     Active Substance: PALBOCICLIB
     Dosage: 100 MG, DAILY
     Route: 048
     Dates: start: 20171006
  2. IBRANCE [Suspect]
     Active Substance: PALBOCICLIB
     Dosage: 100 MG, DAILY
     Route: 048
     Dates: start: 20170908, end: 20180104
  3. IBRANCE [Suspect]
     Active Substance: PALBOCICLIB
     Indication: BREAST CANCER FEMALE
     Dosage: 125 MG, DAILY
     Route: 048
     Dates: start: 20170908, end: 20170918
  4. IBRANCE [Suspect]
     Active Substance: PALBOCICLIB
     Dosage: 75 MG, DAILY
     Route: 048
     Dates: start: 20180105
  5. IBRANCE [Suspect]
     Active Substance: PALBOCICLIB
     Dosage: 75 MG, DAILY
     Route: 048
     Dates: start: 20170105
  6. IBRANCE [Suspect]
     Active Substance: PALBOCICLIB
     Dosage: 100 MG, DAILY (3 WEEKS ON, 1 WEEK OFF)
     Route: 048
     Dates: start: 20170908

REACTIONS (13)
  - Leukopenia [Unknown]
  - Vomiting [Unknown]
  - Candida infection [Unknown]
  - Sneezing [Unknown]
  - Alopecia [Unknown]
  - Drug hypersensitivity [Unknown]
  - Rhinorrhoea [Unknown]
  - Hot flush [Not Recovered/Not Resolved]
  - Nasal congestion [Unknown]
  - Pyrexia [Unknown]
  - Sinus pain [Unknown]
  - Bone marrow failure [Unknown]
  - White blood cell count decreased [Unknown]

NARRATIVE: CASE EVENT DATE: 2017
